FAERS Safety Report 8470603-6 (Version None)
Quarter: 2012Q2

REPORT INFORMATION
  Report Type: 
  Country: None (occurrence: None)
  Receive Date: 20120627
  Receipt Date: 20120620
  Transmission Date: 20120825
  Serious: Yes (Other)
  Sender: FDA-Public Use
  Company Number: PHHY2012PT052680

PATIENT
  Age: 53 Year
  Sex: Female

DRUGS (7)
  1. FLUOXETINE [Concomitant]
  2. CLOZAPINE [Suspect]
     Dates: start: 20090201
  3. CLOZAPINE [Suspect]
     Dosage: 250 MG, QD
  4. VALPROIC ACID [Concomitant]
  5. HALOPERIDOL [Concomitant]
  6. QUETIAPINE [Concomitant]
  7. CLOZAPINE [Suspect]
     Dosage: 150 MG, QD

REACTIONS (5)
  - DYSKINESIA [None]
  - FALL [None]
  - MYOCLONUS [None]
  - SPEECH DISORDER [None]
  - ELECTROENCEPHALOGRAM ABNORMAL [None]
